FAERS Safety Report 10168551 (Version 3)
Quarter: 2014Q2

REPORT INFORMATION
  Report Type: Spontaneous
  Country: TR (occurrence: TR)
  Receive Date: 20140513
  Receipt Date: 20140516
  Transmission Date: 20141212
  Serious: Yes (Other)
  Sender: FDA-Public Use
  Company Number: TR-AMGEN INC.-TURSP2012057578

PATIENT
  Age: 32 Year
  Sex: Female
  Weight: 53 kg

DRUGS (5)
  1. ENBREL [Suspect]
     Indication: RHEUMATOID ARTHRITIS
     Dosage: 50 MG, ONCE IN 10 DAYS
     Route: 058
     Dates: start: 20120328
  2. ENBREL [Suspect]
     Dosage: 50 MG, ONCE IN 15-20 DAYS
     Route: 058
  3. ENBREL [Suspect]
     Dosage: 50 MG, ONCE IN 3-4 WEEKS
     Route: 058
  4. ENBREL [Suspect]
     Dosage: 50 MG, IRREGULARLY
     Route: 058
  5. ENBREL [Suspect]
     Dosage: 50 MG, WEEKLY
     Route: 058
     Dates: end: 201310

REACTIONS (6)
  - Pain [Not Recovered/Not Resolved]
  - Inappropriate schedule of drug administration [Recovered/Resolved]
  - Pulmonary mass [Not Recovered/Not Resolved]
  - Pneumonia [Recovered/Resolved]
  - Injection site pain [Recovered/Resolved]
  - Injection site hypersensitivity [Recovered/Resolved]
